FAERS Safety Report 22138069 (Version 1)
Quarter: 2023Q1

REPORT INFORMATION
  Report Type: Spontaneous
  Country: ES (occurrence: ES)
  Receive Date: 20230325
  Receipt Date: 20230325
  Transmission Date: 20230418
  Serious: Yes (Death)
  Sender: FDA-Public Use
  Company Number: ES-002147023-NVSC2022ES265064

PATIENT
  Age: 88 Year
  Sex: Male

DRUGS (1)
  1. GLYCOPYRROLATE\INDACATEROL MALEATE [Suspect]
     Active Substance: GLYCOPYRROLATE\INDACATEROL MALEATE
     Indication: Chronic obstructive pulmonary disease
     Dosage: UNK UNK, QD UNKNOWN,24 HR) SEVERAL YEARS AGO

REACTIONS (4)
  - Death [Fatal]
  - Device issue [Unknown]
  - Incorrect dose administered [Unknown]
  - Wrong technique in product usage process [Unknown]
